FAERS Safety Report 11987430 (Version 1)
Quarter: 2016Q1

REPORT INFORMATION
  Report Type: Spontaneous
  Country: US (occurrence: None)
  Receive Date: 20160201
  Receipt Date: 20160201
  Transmission Date: 20160526
  Serious: No
  Sender: FDA-Public Use
  Company Number: None

PATIENT

DRUGS (4)
  1. FLUCONAZOLE CLARIS LIFESCIENCE, INC. [Suspect]
     Active Substance: FLUCONAZOLE
  2. LEVOFLOXACIN CLARIS LIFESCIENCE, INC. [Suspect]
     Active Substance: LEVOFLOXACIN
  3. CIPROFLOXACIN CLARIS LIFESCIENCE, INC. [Suspect]
     Active Substance: CIPROFLOXACIN
  4. METRONIDAZOLE CLARIS LIFESCIENCE, INC. [Suspect]
     Active Substance: METRONIDAZOLE

REACTIONS (1)
  - Product packaging confusion [None]
